FAERS Safety Report 9219404 (Version 1)
Quarter: 2013Q1

REPORT INFORMATION
  Report Type: Spontaneous
  Country: US (occurrence: None)
  Receive Date: 20120828
  Receipt Date: 20120828
  Transmission Date: 20140127
  Serious: Yes (Other)
  Sender: FDA-Public Use
  Company Number: 2012BH004492

PATIENT
  Age: 18 Year
  Sex: Female

DRUGS (5)
  1. KIOVIG LIQUID 10 % SOLUTION FOR INFUSION VIAL GLASS(IMMUNOGLOBULIN, NORMAL HUMAN)(SOLUTION FOR INFUSION) [Suspect]
     Indication: PRIMARY IMMUNODEFICIENCY SYNDROME
     Route: 042
     Dates: start: 20120211, end: 20120211
  2. BENADRYL (UKNOWN) [Concomitant]
  3. TYLENOL [Concomitant]
  4. BENADRYL(UKNOWN) [Concomitant]
  5. TYLENOL(UKNOWN) [Concomitant]

REACTIONS (5)
  - Meningitis aseptic [None]
  - Flushing [None]
  - Chest discomfort [None]
  - Chills [None]
  - Vomiting [None]
